FAERS Safety Report 16185316 (Version 1)
Quarter: 2019Q2

REPORT INFORMATION
  Report Type: Spontaneous
  Country: US (occurrence: US)
  Receive Date: 20190411
  Receipt Date: 20190411
  Transmission Date: 20190711
  Serious: No
  Sender: FDA-Public Use
  Company Number: US-TOLMAR, INC.-TOLG20192207

PATIENT
  Sex: Male

DRUGS (2)
  1. METRONIDAZOLE. [Suspect]
     Active Substance: METRONIDAZOLE
     Dosage: UNKNOWN
     Route: 061
  2. METRONIDAZOLE. [Suspect]
     Active Substance: METRONIDAZOLE
     Indication: INFECTION
     Dosage: UNKNOWN
     Route: 061

REACTIONS (4)
  - Product use in unapproved indication [None]
  - Eye irritation [Not Recovered/Not Resolved]
  - Exposure via eye contact [None]
  - Inappropriate schedule of product administration [None]
